FAERS Safety Report 9892738 (Version 1)
Quarter: 2014Q1

REPORT INFORMATION
  Report Type: Report from Study
  Country: NL (occurrence: NL)
  Receive Date: 20140212
  Receipt Date: 20140212
  Transmission Date: 20141002
  Serious: Yes (Death)
  Sender: FDA-Public Use
  Company Number: PHHY2012NL130154

PATIENT
  Sex: 0

DRUGS (2)
  1. SANDOSTATIN LAR [Suspect]
     Indication: PANCREATIC NEUROENDOCRINE TUMOUR
     Dosage: 30 MG+ SOLVENT 2 ML, 1X PER 4 WEEKS
     Dates: start: 20090410
  2. SANDOSTATIN LAR [Suspect]
     Dosage: 30 MG+ SOLVENT 2 ML, 1X PER 4 WEEKS
     Dates: start: 20110603

REACTIONS (1)
  - Death [Fatal]
